FAERS Safety Report 8789029 (Version 1)
Quarter: 2012Q4

REPORT INFORMATION
  Report Type: 
  Country: US (occurrence: US)
  Receive Date: 20120917
  Receipt Date: 20120917
  Transmission Date: 20130627
  Serious: No
  Sender: FDA-Public Use
  Company Number: US-009507513-1209USA003687

PATIENT

DRUGS (1)
  1. ZOCOR [Suspect]
     Indication: HYPERCHOLESTEROLAEMIA
     Dosage: 80 mg, UNK
     Route: 048

REACTIONS (2)
  - Depressive symptom [Recovered/Resolved]
  - Blood testosterone decreased [Recovered/Resolved]
